FAERS Safety Report 5826662-X (Version None)
Quarter: 2008Q3

REPORT INFORMATION
  Report Type: 
  Country: None (occurrence: None)
  Receive Date: 20080725
  Receipt Date: 20080708
  Transmission Date: 20090109
  Serious: No
  Sender: FDA-Public Use
  Company Number: US024051

PATIENT

DRUGS (1)
  1. FENTORA [Suspect]
     Indication: BONE PAIN
     Dosage: 400 UG BUCCAL
     Route: 002

REACTIONS (1)
  - DRUG PRESCRIBING ERROR [None]
